FAERS Safety Report 13343221 (Version 1)
Quarter: 2017Q1

REPORT INFORMATION
  Report Type: Spontaneous
  Country: GB (occurrence: GB)
  Receive Date: 20170316
  Receipt Date: 20170316
  Transmission Date: 20170428
  Serious: Yes (Hospitalization)
  Sender: FDA-Public Use
  Company Number: GB-JNJFOC-20170315411

PATIENT
  Age: 34 Year
  Sex: Female
  Weight: 88.9 kg

DRUGS (4)
  1. VALIUM [Concomitant]
     Active Substance: DIAZEPAM
     Indication: PRODUCT USED FOR UNKNOWN INDICATION
     Route: 065
  2. PALIPERIDONE. [Suspect]
     Active Substance: PALIPERIDONE
     Indication: SCHIZOPHRENIA
     Route: 048
     Dates: start: 20131101, end: 201411
  3. METHADONE [Concomitant]
     Active Substance: METHADONE HYDROCHLORIDE
     Indication: ILL-DEFINED DISORDER
     Route: 065
  4. PALIPERIDONE. [Suspect]
     Active Substance: PALIPERIDONE
     Indication: SCHIZOPHRENIA
     Route: 048

REACTIONS (7)
  - Galactorrhoea [Recovered/Resolved with Sequelae]
  - Impulsive behaviour [Recovered/Resolved with Sequelae]
  - Depression [Recovered/Resolved with Sequelae]
  - Abnormal weight gain [Recovered/Resolved with Sequelae]
  - Lactation puerperal increased [Recovered/Resolved with Sequelae]
  - Mental impairment [Recovered/Resolved with Sequelae]
  - Amenorrhoea [Recovered/Resolved with Sequelae]

NARRATIVE: CASE EVENT DATE: 201311
